FAERS Safety Report 24843768 (Version 3)
Quarter: 2025Q1

REPORT INFORMATION
  Report Type: Report from Study
  Country: KR (occurrence: KR)
  Receive Date: 20250115
  Receipt Date: 20250318
  Transmission Date: 20250409
  Serious: Yes (Hospitalization, Other)
  Sender: TAKEDA
  Company Number: KR-TAKEDA-2025TUS002999

PATIENT
  Age: 34 Year
  Sex: Male
  Weight: 75 kg

DRUGS (13)
  1. BRIGATINIB [Suspect]
     Active Substance: BRIGATINIB
     Indication: Non-small cell lung cancer
     Dosage: 90 MILLIGRAM, QD
     Dates: start: 20240404, end: 20240410
  2. BRIGATINIB [Suspect]
     Active Substance: BRIGATINIB
     Dosage: 180 MILLIGRAM, QD
     Dates: start: 20240411
  3. LAFUTIDINE [Concomitant]
     Active Substance: LAFUTIDINE
     Indication: Gastritis prophylaxis
     Dosage: 10 MILLIGRAM, BID
     Dates: start: 20240502
  4. SODIUM ALGINATE [Concomitant]
     Active Substance: SODIUM ALGINATE
     Indication: Gastritis prophylaxis
     Dosage: 20 MILLILITER, TID
     Dates: start: 20240620
  5. LOPERAMIDE [Concomitant]
     Active Substance: LOPERAMIDE
     Indication: Prophylaxis
     Dosage: 2 MILLIGRAM, BID
     Dates: start: 20240730
  6. Rabeone [Concomitant]
     Indication: Gastritis prophylaxis
     Dosage: 20 MILLIGRAM, QD
     Dates: start: 20240620
  7. MOSAPRIDE CITRATE [Concomitant]
     Active Substance: MOSAPRIDE CITRATE
     Indication: Gastritis prophylaxis
     Dosage: 5 MILLIGRAM, TID
     Dates: start: 20240620
  8. Dilatrend sr [Concomitant]
     Indication: Atrial fibrillation
     Dosage: UNK UNK, QD
     Dates: end: 20241203
  9. TAMBOCOR [Concomitant]
     Active Substance: FLECAINIDE ACETATE
     Indication: Atrial fibrillation
     Dosage: 50 MILLIGRAM, BID
  10. Acertil arginine [Concomitant]
     Indication: Atrial fibrillation
     Dosage: 5 MILLIGRAM, QD
  11. Polybutine [Concomitant]
     Indication: Diarrhoea
     Dosage: 300 MILLIGRAM, TID
     Dates: start: 20241106, end: 20241108
  12. Cycin [Concomitant]
     Indication: Diarrhoea
     Dosage: 250 MILLIGRAM, BID
     Dates: start: 20241106, end: 20241108
  13. Fotagel [Concomitant]
     Indication: Diarrhoea
     Dosage: 20 MILLIGRAM, TID
     Dates: start: 20241106, end: 20241107

REACTIONS (1)
  - Colitis [Recovered/Resolved]

NARRATIVE: CASE EVENT DATE: 20241109
